FAERS Safety Report 4542825-8 (Version None)
Quarter: 2004Q4

REPORT INFORMATION
  Report Type: 
  Country: None (occurrence: None)
  Receive Date: 20041229
  Receipt Date: 20041222
  Transmission Date: 20050328
  Serious: Yes (Death, Life-Threatening, Hospitalization, Other)
  Sender: FDA-Public Use
  Company Number: 200318643BWH

PATIENT
  Age: 23 Year
  Sex: Female

DRUGS (5)
  1. AVELOX [Suspect]
     Indication: BRONCHITIS
     Dosage: ORAL
     Route: 048
     Dates: start: 20030515, end: 20030517
  2. ORAL CONTRACEPTIVE PILLS [Concomitant]
  3. DILAUDID [Concomitant]
  4. ATIVAN [Concomitant]
  5. LACTULOSE [Concomitant]

REACTIONS (17)
  - ACUTE RESPIRATORY DISTRESS SYNDROME [None]
  - CARDIAC ARREST [None]
  - ENCEPHALOPATHY [None]
  - HAEMODIALYSIS [None]
  - HEPATIC FAILURE [None]
  - HEPATIC NECROSIS [None]
  - HEPATITIS FULMINANT [None]
  - HEPATOCELLULAR DAMAGE [None]
  - HYPOTENSION [None]
  - LIVER TRANSPLANT [None]
  - LIVER TRANSPLANT REJECTION [None]
  - MULTI-ORGAN FAILURE [None]
  - MYOCARDIAL INFARCTION [None]
  - RENAL FAILURE [None]
  - RENAL TUBULAR NECROSIS [None]
  - STEVENS-JOHNSON SYNDROME [None]
  - TOXIC EPIDERMAL NECROLYSIS [None]
